FAERS Safety Report 14062157 (Version 2)
Quarter: 2017Q4

REPORT INFORMATION
  Report Type: Report from Study
  Country: BR (occurrence: BR)
  Receive Date: 20171009
  Receipt Date: 20171016
  Transmission Date: 20180321
  Serious: Yes (Hospitalization)
  Sender: FDA-Public Use
  Company Number: BR-TAKEDA-2017TUS020384

PATIENT
  Sex: Female

DRUGS (1)
  1. VEDOLIZUMAB [Suspect]
     Active Substance: VEDOLIZUMAB
     Indication: COLITIS ULCERATIVE
     Dosage: 300 MG, UNK
     Route: 042
     Dates: start: 20170905

REACTIONS (10)
  - Diarrhoea [Unknown]
  - Renal disorder [Unknown]
  - Asthenia [Unknown]
  - Pain in extremity [Unknown]
  - Pain [Unknown]
  - Renal colic [Unknown]
  - Vomiting [Unknown]
  - Back pain [Unknown]
  - Infection [Unknown]
  - Discomfort [Unknown]
